FAERS Safety Report 7362609-5 (Version None)
Quarter: 2011Q1

REPORT INFORMATION
  Report Type: 
  Country: None (occurrence: None)
  Receive Date: 20110320
  Receipt Date: 20100908
  Transmission Date: 20110831
  Serious: Yes (Hospitalization, Other)
  Sender: FDA-Public Use
  Company Number: US-BAYER-201010601NA

PATIENT
  Sex: Female
  Weight: 74 kg

DRUGS (4)
  1. METFORMIN [Concomitant]
     Dosage: UNK
     Dates: start: 19980101, end: 20080101
  2. YASMIN [Suspect]
     Indication: CONTRACEPTION
     Route: 048
     Dates: start: 20010101
  3. YAZ [Suspect]
     Indication: CONTRACEPTION
     Route: 048
     Dates: end: 20090501
  4. SYNTHROID [Concomitant]
     Dosage: UNK
     Dates: start: 20070101

REACTIONS (3)
  - NEPHROLITHIASIS [None]
  - THROMBOSIS [None]
  - PULMONARY EMBOLISM [None]
